FAERS Safety Report 6887220-1 (Version None)
Quarter: 2010Q3

REPORT INFORMATION
  Report Type: 
  Country: None (occurrence: None)
  Receive Date: 20100730
  Receipt Date: 20100729
  Transmission Date: 20110219
  Serious: Yes (Hospitalization)
  Sender: FDA-Public Use
  Company Number: US-ROXANE LABORATORIES, INC.-2010-RO-00943RO

PATIENT
  Age: 59 Year
  Sex: Female
  Weight: 90 kg

DRUGS (14)
  1. CYCLOPHOSPHAMIDE [Suspect]
     Indication: LUNG NEOPLASM MALIGNANT
  2. CYCLOPHOSPHAMIDE [Suspect]
     Indication: METASTASES TO CENTRAL NERVOUS SYSTEM
  3. CYCLOPHOSPHAMIDE [Suspect]
     Indication: METASTASES TO SPINE
  4. CYCLOPHOSPHAMIDE [Suspect]
     Indication: METASTASES TO KIDNEY
  5. DOUBLE-BLIND [Suspect]
     Indication: PROPHYLAXIS
     Route: 048
     Dates: start: 20100203, end: 20100707
  6. RADIATION [Suspect]
     Indication: METASTASES TO CENTRAL NERVOUS SYSTEM
     Dates: start: 20100203
  7. VINCRISTINE [Suspect]
     Indication: LUNG NEOPLASM MALIGNANT
  8. VINCRISTINE [Suspect]
     Indication: METASTASES TO CENTRAL NERVOUS SYSTEM
  9. VINCRISTINE [Suspect]
     Indication: METASTASES TO SPINE
  10. VINCRISTINE [Suspect]
     Indication: METASTASES TO KIDNEY
  11. DOXORUBICIN HCL [Suspect]
     Indication: LUNG NEOPLASM MALIGNANT
  12. DOXORUBICIN HCL [Suspect]
     Indication: METASTASES TO CENTRAL NERVOUS SYSTEM
  13. DOXORUBICIN HCL [Suspect]
     Indication: METASTASES TO SPINE
  14. DOXORUBICIN HCL [Suspect]
     Indication: METASTASES TO KIDNEY

REACTIONS (7)
  - HAEMOGLOBIN DECREASED [None]
  - HYPOCALCAEMIA [None]
  - HYPOKALAEMIA [None]
  - NAUSEA [None]
  - PLATELET COUNT DECREASED [None]
  - VOMITING [None]
  - WHITE BLOOD CELL COUNT DECREASED [None]
